FAERS Safety Report 18304310 (Version 9)
Quarter: 2024Q2

REPORT INFORMATION
  Report Type: Report from Study
  Country: IL (occurrence: IL)
  Receive Date: 20200924
  Receipt Date: 20240623
  Transmission Date: 20240715
  Serious: Yes (Hospitalization)
  Sender: FDA-Public Use
  Company Number: IL-ABBVIE-20K-082-3381771-00

PATIENT
  Age: 71 Year
  Sex: Male
  Weight: 81 kg

DRUGS (32)
  1. VENETOCLAX [Suspect]
     Active Substance: VENETOCLAX
     Indication: Chronic lymphocytic leukaemia
     Dosage: DURATION: MODIFICATION DUE TO COVID-19
     Route: 048
     Dates: start: 20201129, end: 20201205
  2. VENETOCLAX [Suspect]
     Active Substance: VENETOCLAX
     Indication: Chronic lymphocytic leukaemia
     Dosage: DURATION: INTERRUPTION DUE TO COVID-19
     Route: 048
     Dates: start: 20200426, end: 20200917
  3. VENETOCLAX [Suspect]
     Active Substance: VENETOCLAX
     Indication: Chronic lymphocytic leukaemia
     Route: 048
     Dates: start: 20201206, end: 20210731
  4. VENETOCLAX [Suspect]
     Active Substance: VENETOCLAX
     Indication: Chronic lymphocytic leukaemia
     Dosage: DURATION: MODIFICATION DUE TO COVID-19
     Route: 048
     Dates: start: 20201111, end: 20201128
  5. OBINUTUZUMAB [Suspect]
     Active Substance: OBINUTUZUMAB
     Indication: Anti B antibody
     Dosage: FORM STRENGTH: 100 MG
     Route: 042
     Dates: start: 20200309, end: 20200309
  6. OBINUTUZUMAB [Suspect]
     Active Substance: OBINUTUZUMAB
     Indication: Anti B antibody
     Dosage: FORM STRENGTH: 1000 MILLIGRAM
     Route: 042
     Dates: start: 20200510, end: 20200510
  7. OBINUTUZUMAB [Suspect]
     Active Substance: OBINUTUZUMAB
     Indication: Anti B antibody
     Dosage: FORM STRENGTH: 1000 MILLIGRAM
     Route: 042
     Dates: start: 20200316, end: 20200316
  8. OBINUTUZUMAB [Suspect]
     Active Substance: OBINUTUZUMAB
     Indication: Anti B antibody
     Dosage: FORM STRENGTH: 900 MG
     Route: 042
     Dates: start: 20200310, end: 20200310
  9. OBINUTUZUMAB [Suspect]
     Active Substance: OBINUTUZUMAB
     Indication: Anti B antibody
     Route: 042
     Dates: start: 20200323, end: 20200323
  10. OBINUTUZUMAB [Suspect]
     Active Substance: OBINUTUZUMAB
     Indication: Anti B antibody
     Dosage: FORM STRENGTH: 1000 MILLIGRAM
     Route: 042
     Dates: start: 20200809, end: 20200809
  11. OBINUTUZUMAB [Suspect]
     Active Substance: OBINUTUZUMAB
     Indication: Anti B antibody
     Dosage: FORM STRENGTH: 1000 MILLIGRAM
     Route: 042
     Dates: start: 20200412, end: 20200412
  12. OBINUTUZUMAB [Suspect]
     Active Substance: OBINUTUZUMAB
     Indication: Anti B antibody
     Dosage: FORM STRENGTH: 1000 MILLIGRAM
     Route: 042
     Dates: start: 20200614, end: 20200614
  13. OBINUTUZUMAB [Suspect]
     Active Substance: OBINUTUZUMAB
     Indication: Anti B antibody
     Dosage: FORM STRENGTH: 1000 MILLIGRAM
     Route: 042
     Dates: start: 20200712, end: 20200712
  14. COVID-19 vaccine [Concomitant]
     Indication: COVID-19 immunisation
     Dosage: TIME INTERVAL: TOTAL
     Route: 030
     Dates: start: 20210101, end: 20210101
  15. COVID-19 vaccine [Concomitant]
     Indication: COVID-19 immunisation
     Dosage: TIME INTERVAL: TOTAL
     Route: 030
     Dates: start: 2020, end: 2020
  16. BISOPROLOL FUMARATE [Concomitant]
     Active Substance: BISOPROLOL FUMARATE
     Indication: Hypertension
  17. ALLOPURINOL [Concomitant]
     Active Substance: ALLOPURINOL
     Indication: Prophylaxis
     Dates: start: 20200327
  18. CANDESARTAN CILEXETIL\HYDROCHLOROTHIAZIDE [Concomitant]
     Active Substance: CANDESARTAN CILEXETIL\HYDROCHLOROTHIAZIDE
     Indication: Hypertension
     Dates: start: 20200107
  19. CARTIA [Concomitant]
     Indication: Ischaemic heart disease prophylaxis
     Dates: start: 20200107
  20. CIPRALEX [Concomitant]
     Active Substance: ESCITALOPRAM OXALATE
     Indication: Prophylaxis
     Dates: start: 20200107
  21. LIPITOR [Concomitant]
     Active Substance: ATORVASTATIN CALCIUM
     Indication: Blood cholesterol decreased
     Dates: start: 20200107
  22. MAGNESIUM CITRATE [Concomitant]
     Active Substance: MAGNESIUM CITRATE
     Indication: Blood magnesium abnormal
     Dates: start: 20200401
  23. NEXIUM [Concomitant]
     Active Substance: ESOMEPRAZOLE MAGNESIUM
     Indication: Prophylaxis against gastrointestinal ulcer
     Dates: start: 20200107
  24. NORVASC [Concomitant]
     Active Substance: AMLODIPINE BESYLATE
     Indication: Hypertension
     Dates: start: 20200401
  25. METHYLPREDNISOLONE [Concomitant]
     Active Substance: METHYLPREDNISOLONE
     Indication: Adjuvant therapy
     Dates: start: 20200309, end: 20200309
  26. METHYLPREDNISOLONE [Concomitant]
     Active Substance: METHYLPREDNISOLONE
     Indication: Adjuvant therapy
     Dates: start: 20200316, end: 20200316
  27. METHYLPREDNISOLONE [Concomitant]
     Active Substance: METHYLPREDNISOLONE
     Indication: Adjuvant therapy
     Dates: start: 20200323, end: 20200323
  28. METHYLPREDNISOLONE [Concomitant]
     Active Substance: METHYLPREDNISOLONE
     Indication: Adjuvant therapy
     Dates: start: 20200412, end: 20200412
  29. PROMETHAZINE HYDROCHLORIDE [Concomitant]
     Active Substance: PROMETHAZINE HYDROCHLORIDE
     Indication: Adjuvant therapy
     Dates: start: 20200309, end: 20200309
  30. PROMETHAZINE HYDROCHLORIDE [Concomitant]
     Active Substance: PROMETHAZINE HYDROCHLORIDE
     Indication: Adjuvant therapy
     Dates: start: 20200316, end: 20200316
  31. LORATADINE [Concomitant]
     Active Substance: LORATADINE
     Indication: Adjuvant therapy
     Dates: start: 20200412, end: 20200412
  32. EVUSHELD [Concomitant]
     Active Substance: CILGAVIMAB\TIXAGEVIMAB
     Indication: COVID-19 prophylaxis
     Dates: start: 20220425

REACTIONS (11)
  - SARS-CoV-2 test positive [Recovered/Resolved]
  - Febrile neutropenia [Recovered/Resolved]
  - Neutrophil count decreased [Recovered/Resolved]
  - Neutropenia [Recovered/Resolved]
  - Neutropenia [Recovered/Resolved]
  - Neutropenia [Recovered/Resolved]
  - Neutropenia [Recovered/Resolved]
  - Neutropenia [Recovered/Resolved]
  - Neutropenia [Recovered/Resolved]
  - Cytokine release syndrome [Recovered/Resolved]
  - Neutropenia [Recovered/Resolved]

NARRATIVE: CASE EVENT DATE: 20200316
